FAERS Safety Report 9610226 (Version 1)
Quarter: 2013Q4

REPORT INFORMATION
  Report Type: Spontaneous
  Country: US (occurrence: US)
  Receive Date: 20131009
  Receipt Date: 20131009
  Transmission Date: 20140711
  Serious: No
  Sender: FDA-Public Use
  Company Number: US-PURDUE-USA-2012-0096697

PATIENT
  Age: 61 Year
  Sex: Female

DRUGS (2)
  1. BUTRANS [Suspect]
     Indication: BACK PAIN
     Dosage: 10 MCG, WEEKLY
     Route: 062
     Dates: start: 20121120, end: 20121126
  2. BUTRANS [Suspect]
     Indication: PAIN
     Dosage: 20 MCG, UNK
     Route: 062
     Dates: start: 201209, end: 201211

REACTIONS (4)
  - Feeling abnormal [Not Recovered/Not Resolved]
  - Asthenia [Not Recovered/Not Resolved]
  - Decreased appetite [Not Recovered/Not Resolved]
  - Diarrhoea [Not Recovered/Not Resolved]
